FAERS Safety Report 8164126-1 (Version None)
Quarter: 2012Q1

REPORT INFORMATION
  Report Type: 
  Country: None (occurrence: None)
  Receive Date: 20120224
  Receipt Date: 20120221
  Transmission Date: 20120608
  Serious: Yes (Death)
  Sender: FDA-Public Use
  Company Number: US-ABBOTT-11P-163-0882028-00

PATIENT
  Sex: Female
  Weight: 131.66 kg

DRUGS (8)
  1. SINGULAIR [Concomitant]
  2. ALBUTEROL [Concomitant]
  3. LUPRON DEPOT [Suspect]
     Indication: UTERINE LEIOMYOMA
     Dates: start: 20100902, end: 20110927
  4. VENTOLIN [Concomitant]
  5. LUPRON DEPOT [Suspect]
     Indication: MENORRHAGIA
  6. RENAGEL [Concomitant]
  7. QUININE SULFATE [Concomitant]
  8. ZOLOFT [Concomitant]

REACTIONS (1)
  - DEATH [None]
